FAERS Safety Report 4450206-0 (Version None)
Quarter: 2004Q3

REPORT INFORMATION
  Report Type: 
  Country: None (occurrence: None)
  Receive Date: 20040914
  Receipt Date: 20040907
  Transmission Date: 20050211
  Serious: Yes (Death, Other)
  Sender: FDA-Public Use
  Company Number: 200310131BYL

PATIENT
  Age: 87 Year
  Sex: Female

DRUGS (8)
  1. CIPROFLOXACIN [Suspect]
     Indication: SEPSIS
     Dosage: 300 MG, TOTAL DAILY, INTRAVENOUS DRIP
     Route: 041
     Dates: start: 20030307
  2. POLYGLOBULIN N [Concomitant]
  3. AMINOTRIPA 1 [Concomitant]
  4. GASTER [Concomitant]
  5. ALINAMIN F [Concomitant]
  6. PANTOSIN [Concomitant]
  7. SOLCOSERYL [Concomitant]
  8. SULPERAZON [Concomitant]

REACTIONS (6)
  - ANAPHYLACTIC SHOCK [None]
  - CEREBRAL ATROPHY [None]
  - CONVULSION [None]
  - DEPRESSED LEVEL OF CONSCIOUSNESS [None]
  - IMMUNOSUPPRESSION [None]
  - LOSS OF CONSCIOUSNESS [None]
